FAERS Safety Report 6935657-4 (Version None)
Quarter: 2010Q3

REPORT INFORMATION
  Report Type: 
  Country: None (occurrence: None)
  Receive Date: 20100823
  Receipt Date: 20100813
  Transmission Date: 20110219
  Serious: Yes (Hospitalization, Other)
  Sender: FDA-Public Use
  Company Number: US-JNJFOC-20100805270

PATIENT
  Sex: Female
  Weight: 61.24 kg

DRUGS (11)
  1. DURAGESIC-100 [Suspect]
     Indication: BACK PAIN
     Dosage: 150MCG PATCH/100MCG/ONE EVERY 48 HOURS
     Route: 062
  2. DURAGESIC-100 [Suspect]
     Dosage: 150MCG/PATCH/50MCG/ONE EVERY 72 HOURS
     Route: 062
  3. DURAGESIC-100 [Suspect]
     Indication: PAIN
     Route: 062
  4. DURAGESIC-100 [Suspect]
     Route: 062
  5. VISTARIL [Suspect]
     Indication: PRODUCT USED FOR UNKNOWN INDICATION
     Route: 048
  6. OXYCONTIN [Concomitant]
     Indication: PAIN
     Route: 048
  7. KLONOPIN [Concomitant]
     Indication: ANXIETY
     Route: 048
  8. WELLBUTRIN [Concomitant]
     Indication: DEPRESSION
     Route: 048
  9. NUVIGIL [Concomitant]
     Indication: SLEEP DISORDER
     Route: 048
  10. DALMANE [Concomitant]
     Indication: SLEEP DISORDER
     Route: 048
  11. PERCOCET [Concomitant]
     Indication: BREAKTHROUGH PAIN
     Dosage: 100/650MG/4 TIMES DAILY AS NEEDED
     Route: 048

REACTIONS (8)
  - ABNORMAL LOSS OF WEIGHT [None]
  - APPLICATION SITE RASH [None]
  - APPLICATION SITE VESICLES [None]
  - DIZZINESS [None]
  - HYPERHIDROSIS [None]
  - NEOPLASM MALIGNANT [None]
  - RAYNAUD'S PHENOMENON [None]
  - WRONG TECHNIQUE IN DRUG USAGE PROCESS [None]
